FAERS Safety Report 4615216-9 (Version None)
Quarter: 2005Q1

REPORT INFORMATION
  Report Type: 
  Country: None (occurrence: None)
  Receive Date: 20050310
  Receipt Date: 20040806
  Transmission Date: 20050727
  Serious: Yes (Other)
  Sender: FDA-Public Use
  Company Number: 200510228BBE

PATIENT
  Sex: Male

DRUGS (10)
  1. KONYNE [Suspect]
     Indication: FACTOR IX DEFICIENCY
     Dates: end: 19850101
  2. KONYNE [Suspect]
     Indication: FACTOR IX DEFICIENCY
     Dates: end: 19850101
  3. HYLAND (FACTOR IX) (FACTOR IX) [Suspect]
     Dates: start: 19840101
  4. HYLAND (FACTOR IX) (FACTOR IX) [Suspect]
     Dates: start: 19850101
  5. ALPHA (FACTOR IX) (FACTOR IX) [Suspect]
     Dates: start: 19850101
  6. ALPHA (FACTOR IX) (FACTOR IX) [Suspect]
     Dates: start: 19860101
  7. ALPHA (FACTOR IX) (FACTOR IX) [Suspect]
     Dates: start: 19870101
  8. PROFILNINE [Suspect]
     Dates: start: 19880101
  9. PROFILNINE [Suspect]
     Dates: start: 19890101
  10. PROFILNINE [Suspect]
     Dates: start: 19900101

REACTIONS (1)
  - HEPATITIS C VIRUS [None]
